FAERS Safety Report 6375289-2 (Version None)
Quarter: 2009Q3

REPORT INFORMATION
  Report Type: 
  Country: None (occurrence: None)
  Receive Date: 20090924
  Receipt Date: 20090914
  Transmission Date: 20100115
  Serious: Yes (Disabling)
  Sender: FDA-Public Use
  Company Number: A0808374A

PATIENT
  Sex: Female
  Weight: 45 kg

DRUGS (2)
  1. LAPATINIB [Suspect]
     Indication: NEOPLASM
     Dosage: 1250MG PER DAY
     Route: 048
     Dates: start: 20090217
  2. CAPECITABINE [Suspect]
     Indication: NEOPLASM
     Dosage: 2000MGM2 TWICE PER DAY
     Route: 048
     Dates: start: 20090217

REACTIONS (1)
  - PUNCTATE KERATITIS [None]
